FAERS Safety Report 4368252-4 (Version None)
Quarter: 2004Q2

REPORT INFORMATION
  Report Type: 
  Country: None (occurrence: None)
  Receive Date: 20040527
  Receipt Date: 20040511
  Transmission Date: 20050107
  Serious: Yes (Hospitalization)
  Sender: FDA-Public Use
  Company Number: E129841

PATIENT
  Age: 54 Year
  Sex: Female

DRUGS (9)
  1. OXALIPLATIN [Suspect]
     Indication: COLORECTAL CANCER
     Dosage: 85 MG/M2 Q2W
     Route: 042
     Dates: start: 20011219, end: 20011219
  2. FLUOROURACIL [Suspect]
     Dosage: 2000 MG/M2 (400 MG/M2 BOLUS THEN 600 MG 22 HOUR CONTINUOUS ON D1 AND D2 Q2W
     Route: 042
     Dates: start: 20011219, end: 20011220
  3. LEUCOVORIN [Suspect]
     Indication: COLORECTAL CANCER
     Dosage: 200 MG/M2, IN 2 HOURS INTRAVENOUS INFUSION, D1 AND D2, Q2W
     Route: 042
     Dates: start: 20011219, end: 20011220
  4. WARFARIN SODIUM [Concomitant]
  5. DICLOFENAC [Concomitant]
  6. METOCLOPRAMIDE [Concomitant]
  7. MORPHINE SULFATE [Concomitant]
  8. LOSEC (OMEPRAZOLE) [Concomitant]
  9. CLONIDINE HCL [Concomitant]

REACTIONS (10)
  - CHEST WALL PAIN [None]
  - DEHYDRATION [None]
  - DIARRHOEA [None]
  - DRUG TOXICITY [None]
  - FEBRILE NEUTROPENIA [None]
  - NEPHRITIS INTERSTITIAL [None]
  - NEUTROPENIC SEPSIS [None]
  - PLEURITIC PAIN [None]
  - RENAL IMPAIRMENT [None]
  - VOMITING [None]
